FAERS Safety Report 11121146 (Version 2)
Quarter: 2016Q3

REPORT INFORMATION
  Report Type: Spontaneous
  Country: FR (occurrence: FR)
  Receive Date: 20150515
  Receipt Date: 20160711
  Transmission Date: 20161109
  Serious: Yes (Hospitalization, Other)
  Sender: FDA-Public Use
  Company Number: FR-ZYDUS-008030

PATIENT
  Age: 50 Year
  Sex: Female

DRUGS (3)
  1. TRAMADOL. [Suspect]
     Active Substance: TRAMADOL
     Indication: PRODUCT USED FOR UNKNOWN INDICATION
     Route: 048
  2. ETHANOL [Suspect]
     Active Substance: ALCOHOL
     Indication: PRODUCT USED FOR UNKNOWN INDICATION
     Route: 048
  3. ALPRAZOLAM. [Interacting]
     Active Substance: ALPRAZOLAM
     Indication: PRODUCT USED FOR UNKNOWN INDICATION
     Route: 048

REACTIONS (17)
  - Drug interaction [Recovering/Resolving]
  - Cardiogenic shock [Recovering/Resolving]
  - Respiratory failure [Recovering/Resolving]
  - Epilepsy [Recovering/Resolving]
  - Lactic acidosis [Recovering/Resolving]
  - Clonic convulsion [Recovering/Resolving]
  - Overdose [Recovering/Resolving]
  - Acute kidney injury [Recovering/Resolving]
  - Atrioventricular block first degree [Recovering/Resolving]
  - Cardiac arrest [Recovering/Resolving]
  - Mydriasis [Recovering/Resolving]
  - Cardiovascular insufficiency [Recovering/Resolving]
  - Ventricular arrhythmia [Recovering/Resolving]
  - Haemodynamic instability [Recovering/Resolving]
  - Acute hepatic failure [Recovering/Resolving]
  - Neuromyopathy [Recovering/Resolving]
  - Toxicity to various agents [Recovering/Resolving]
